FAERS Safety Report 9753235 (Version 2)
Quarter: 2015Q3

REPORT INFORMATION
  Report Type: Spontaneous
  Country: US (occurrence: US)
  Receive Date: 20131213
  Receipt Date: 20150805
  Transmission Date: 20151125
  Serious: No
  Sender: FDA-Public Use
  Company Number: US-GILEAD-2010-0027634

PATIENT
  Age: 50 Year
  Sex: Male
  Weight: 56.25 kg

DRUGS (13)
  1. TUMS [Concomitant]
     Active Substance: CALCIUM CARBONATE
  2. ADVAIR HFA [Concomitant]
     Active Substance: FLUTICASONE PROPIONATE\SALMETEROL XINAFOATE
  3. VFEND [Concomitant]
     Active Substance: VORICONAZOLE
  4. NASACORT [Concomitant]
     Active Substance: TRIAMCINOLONE ACETONIDE
  5. LETAIRIS [Suspect]
     Active Substance: AMBRISENTAN
     Indication: PULMONARY ARTERIAL HYPERTENSION
     Route: 048
     Dates: start: 20091102
  6. PEPCID [Concomitant]
     Active Substance: FAMOTIDINE
  7. CENTRUM [Concomitant]
     Active Substance: VITAMINS
  8. ADVIL [Concomitant]
     Active Substance: IBUPROFEN
  9. ALBUTEROL INHALER [Concomitant]
     Active Substance: ALBUTEROL
  10. VERAMYST [Concomitant]
     Active Substance: FLUTICASONE FUROATE
  11. ALLEGRA [Concomitant]
     Active Substance: FEXOFENADINE HYDROCHLORIDE
  12. MUCINEX [Concomitant]
     Active Substance: GUAIFENESIN
  13. LUNESTA [Concomitant]
     Active Substance: ESZOPICLONE

REACTIONS (1)
  - Tongue disorder [Unknown]
